FAERS Safety Report 12682825 (Version 1)
Quarter: 2016Q3

REPORT INFORMATION
  Report Type: Spontaneous
  Country: GB (occurrence: GB)
  Receive Date: 20160825
  Receipt Date: 20160825
  Transmission Date: 20161109
  Serious: Yes (Hospitalization)
  Sender: FDA-Public Use
  Company Number: GB-CIPLA LTD.-2016GB17595

PATIENT

DRUGS (21)
  1. ATORVASTATIN [Concomitant]
     Active Substance: ATORVASTATIN
     Indication: HYPERCHOLESTEROLAEMIA
     Dosage: 1 DF, QD, NIGHT
     Route: 065
     Dates: start: 20160104
  2. OMEPRAZOLE. [Concomitant]
     Active Substance: OMEPRAZOLE
     Indication: HYPERCHLORHYDRIA
     Dosage: 1 DF, QD, EACH MORNING
     Route: 065
     Dates: start: 20160104
  3. COCODAMOL [Concomitant]
     Active Substance: ACETAMINOPHEN\CODEINE PHOSPHATE
     Dosage: UNK, PRN, 1 OR 2, 4 TIMES DAILY
     Route: 065
     Dates: start: 20160104
  4. ELANTAN [Concomitant]
     Active Substance: ISOSORBIDE MONONITRATE
     Indication: CORONARY ARTERY DISEASE
     Dosage: 1 DF, QD, EACH MORNING
     Route: 065
     Dates: start: 20160104
  5. EPADERM [Concomitant]
     Active Substance: MINERAL OIL\PETROLATUM\WAX, EMULSIFYING
     Dosage: UNK, USE AS DIRECTED
     Route: 065
     Dates: start: 20160624, end: 20160722
  6. MICONAZOLE. [Concomitant]
     Active Substance: MICONAZOLE
     Dosage: 1 DF, BID, TO AFFECTED AREA IN GROIN
     Route: 065
     Dates: start: 20160624, end: 20160701
  7. PREDNISOLONE. [Concomitant]
     Active Substance: PREDNISOLONE
     Dosage: 6 DF, QD
     Route: 065
     Dates: start: 20160624, end: 20160701
  8. TIMODINE [Concomitant]
     Dosage: 1 DF, TID
     Route: 065
     Dates: start: 20160525, end: 20160526
  9. ADCAL [Concomitant]
     Active Substance: CALCIUM CARBONATE
     Indication: OSTEOPOROSIS
     Dosage: 1 DF, BID, LEMON
     Route: 065
     Dates: start: 20160330
  10. ASPIRIN. [Concomitant]
     Active Substance: ASPIRIN
     Indication: MYOCARDIAL INFARCTION
     Dosage: 1 DF, QD
     Route: 065
     Dates: start: 20160421
  11. ATENOLOL. [Concomitant]
     Active Substance: ATENOLOL
     Indication: CORONARY ARTERY DISEASE
     Dosage: 1 DF, QD, EACH MORNING
     Route: 065
     Dates: start: 20160104
  12. FOLIC ACID. [Concomitant]
     Active Substance: FOLIC ACID
     Dosage: 1 DF, QD, TO BE STARTED AFTER 2 WEEKS ON
     Route: 065
     Dates: start: 20160608, end: 20160706
  13. ALENDRONIC ACID [Concomitant]
     Active Substance: ALENDRONIC ACID
     Indication: OSTEOPOROSIS
     Dosage: 1 DF, WEEKLY ONCE, AS DIRECTED FOR OST
     Route: 065
     Dates: start: 20131204
  14. DOUBLEBASE [Concomitant]
     Active Substance: ISOPROPYL MYRISTATE\PARAFFIN
     Dosage: UNK, PRN
     Route: 065
     Dates: start: 20160622
  15. HYDROXOCOBALAMIN [Concomitant]
     Active Substance: HYDROXOCOBALAMIN
     Dosage: 1 DF, WEEKLY THRICE FOR 2 WEEKS
     Route: 030
     Dates: start: 20160608
  16. LEVOTHYROXINE. [Concomitant]
     Active Substance: LEVOTHYROXINE
     Indication: HYPOTHYROIDISM
     Dosage: 1 DF, QD
     Route: 065
     Dates: start: 20160427
  17. LAMOTRIGINE. [Suspect]
     Active Substance: LAMOTRIGINE
     Dosage: UNK
     Route: 065
     Dates: start: 20151113
  18. FEXOFENADINE [Concomitant]
     Active Substance: FEXOFENADINE\FEXOFENADINE HYDROCHLORIDE
     Dosage: 1 DF, QD
     Route: 065
     Dates: start: 20160725
  19. LEVETIRACETAM. [Concomitant]
     Active Substance: LEVETIRACETAM
     Dosage: 1 DF, BID, 1 TWICE DAILY (DOSE TO BE INCREASED ON 10/8/16)
     Route: 065
     Dates: start: 20160804
  20. NITROMIN [Concomitant]
     Dosage: 1 DF, ONE PUFF UNDER THE TONGUE, REPEATED AFTER FIVE
     Route: 060
     Dates: start: 20150605
  21. ZEROBASE [Concomitant]
     Dosage: 1 DF, PRN
     Route: 065
     Dates: start: 20160308

REACTIONS (2)
  - Rash [Unknown]
  - Dermatitis exfoliative [Recovering/Resolving]

NARRATIVE: CASE EVENT DATE: 20160804
